FAERS Safety Report 23429063 (Version 3)
Quarter: 2024Q1

REPORT INFORMATION
  Report Type: Spontaneous
  Country: US (occurrence: US)
  Receive Date: 20240122
  Receipt Date: 20240304
  Transmission Date: 20240410
  Serious: Yes (Other)
  Sender: FDA-Public Use
  Company Number: US-ORGANON-O2401USA001637

PATIENT
  Sex: Female

DRUGS (1)
  1. NEXPLANON [Suspect]
     Active Substance: ETONOGESTREL
     Indication: Contraception
     Dosage: 1 IMPLANT
     Route: 059
     Dates: start: 20231220

REACTIONS (5)
  - Device expulsion [Recovered/Resolved]
  - Product quality issue [Unknown]
  - Device defective [Unknown]
  - Implant site infection [Unknown]
  - No adverse event [Unknown]
